FAERS Safety Report 6649751-9 (Version None)
Quarter: 2010Q1

REPORT INFORMATION
  Report Type: 
  Country: None (occurrence: None)
  Receive Date: 20100324
  Receipt Date: 20100324
  Transmission Date: 20100710
  Serious: Yes (Other)
  Sender: FDA-Public Use
  Company Number: None

PATIENT
  Age: 74 Year
  Sex: Male
  Weight: 84.369 kg

DRUGS (2)
  1. CIPROFLOXACIN HCL [Suspect]
     Indication: POST PROCEDURAL HAEMATURIA
     Dosage: 500 MG TACOB TWICE DAILEY
     Dates: start: 20100107, end: 20100121
  2. CIPROFLOXACIN HCL [Suspect]
     Indication: POST PROCEDURAL HAEMATURIA
     Dosage: 500 MG TACOB TWICE DAILEY
     Dates: start: 20100223, end: 20100304

REACTIONS (2)
  - MUSCULOSKELETAL PAIN [None]
  - MYALGIA [None]
